FAERS Safety Report 8479122-4 (Version None)
Quarter: 2012Q2

REPORT INFORMATION
  Report Type: 
  Country: None (occurrence: None)
  Receive Date: 20120629
  Receipt Date: 20120625
  Transmission Date: 20120825
  Serious: Yes (Hospitalization)
  Sender: FDA-Public Use
  Company Number: PHHO2011DE17352

PATIENT
  Sex: Female
  Weight: 72 kg

DRUGS (6)
  1. IRBESARTAN [Concomitant]
     Indication: HYPERTENSION
     Dosage: 150 MG, QD
     Route: 048
     Dates: start: 20100501
  2. IRBESARTAN AND HYDROCHLOROTHIAZIDE [Concomitant]
     Indication: HYPERTENSION
     Dosage: 12.5 MG, QD
     Route: 048
     Dates: start: 20110414
  3. PANTOPRAZOLE [Concomitant]
     Indication: PROPHYLAXIS
     Dosage: 40 MG, QD
     Route: 048
     Dates: start: 20100816
  4. ASPIRIN [Concomitant]
     Indication: ANTICOAGULANT THERAPY
     Dosage: 100 MG, QD
     Route: 048
     Dates: start: 20110617
  5. TASIGNA [Suspect]
     Indication: CHRONIC MYELOID LEUKAEMIA
     Dosage: 300 MG, BID
     Route: 048
     Dates: start: 20100721
  6. PENTAERYTHRITOL TETRANITRATE [Concomitant]
     Indication: HYPERTENSION
     Dosage: 50 MG, TID
     Route: 048
     Dates: start: 20110617

REACTIONS (1)
  - ARTERIOSCLEROSIS CORONARY ARTERY [None]
